FAERS Safety Report 15634983 (Version 1)
Quarter: 2018Q4

REPORT INFORMATION
  Report Type: Spontaneous
  Country: FR (occurrence: FR)
  Receive Date: 20181119
  Receipt Date: 20181119
  Transmission Date: 20190205
  Serious: Yes (Other)
  Sender: FDA-Public Use
  Company Number: FR-AMGEN-FRASP2018162581

PATIENT
  Age: 49 Year
  Sex: Male

DRUGS (4)
  1. RITUXIMAB. [Concomitant]
     Active Substance: RITUXIMAB
     Indication: NEUROMYELITIS OPTICA SPECTRUM DISORDER
     Dosage: 2 G, Q6MO (TWO DOSES OF 1 G SEPARATED BY 15 DAYS)
     Dates: start: 201603, end: 201610
  2. FILGRASTIM [Suspect]
     Active Substance: FILGRASTIM
     Indication: NEUTROPENIA
     Dosage: UNK
     Route: 065
     Dates: start: 201701, end: 2017
  3. FILGRASTIM [Suspect]
     Active Substance: FILGRASTIM
     Indication: NEUTROPENIA
     Dosage: UNK
     Route: 065
     Dates: start: 2017
  4. RITUXIMAB. [Concomitant]
     Active Substance: RITUXIMAB
     Dosage: UNK
     Dates: start: 2017

REACTIONS (3)
  - Off label use [Unknown]
  - Optic neuritis [Unknown]
  - Neutropenia [Unknown]

NARRATIVE: CASE EVENT DATE: 2017
